FAERS Safety Report 9910333 (Version 2)
Quarter: 2014Q1

REPORT INFORMATION
  Report Type: Spontaneous
  Country: US (occurrence: US)
  Receive Date: 20140219
  Receipt Date: 20140319
  Transmission Date: 20141002
  Serious: No
  Sender: FDA-Public Use
  Company Number: US-GILEAD-2014-0094812

PATIENT
  Sex: Female

DRUGS (4)
  1. LETAIRIS [Suspect]
     Indication: PULMONARY ARTERIAL HYPERTENSION
     Dosage: 10 MG, QD
     Route: 065
     Dates: start: 201308
  2. LETAIRIS [Suspect]
     Indication: CARDIAC FAILURE
  3. TYVASO [Concomitant]
  4. RIOCIGUAT [Concomitant]

REACTIONS (2)
  - Hypotension [Unknown]
  - Asthenia [Unknown]
